FAERS Safety Report 24812120 (Version 1)
Quarter: 2025Q1

REPORT INFORMATION
  Report Type: Spontaneous
  Country: US (occurrence: None)
  Receive Date: 20250106
  Receipt Date: 20250106
  Transmission Date: 20250409
  Serious: Yes (Disabling)
  Sender: FDA-CTU
  Company Number: None

PATIENT
  Age: 39 Year
  Sex: Female
  Weight: 60.75 kg

DRUGS (2)
  1. DYSPORT [Suspect]
     Active Substance: ABOBOTULINUMTOXINA
     Indication: Product used for unknown indication
  2. Norethindrone (contraceptive) [Concomitant]

REACTIONS (10)
  - Arthralgia [None]
  - Pain in extremity [None]
  - Arthralgia [None]
  - Pain in extremity [None]
  - Arthralgia [None]
  - Neuralgia [None]
  - Small fibre neuropathy [None]
  - Gait disturbance [None]
  - Skin discolouration [None]
  - Feeling of body temperature change [None]

NARRATIVE: CASE EVENT DATE: 20240330
